FAERS Safety Report 10022011 (Version 1)
Quarter: 2014Q1

REPORT INFORMATION
  Report Type: Spontaneous
  Country: US (occurrence: None)
  Receive Date: 20140318
  Receipt Date: 20140318
  Transmission Date: 20141002
  Serious: Yes (Other)
  Sender: FDA-Public Use
  Company Number: None

PATIENT
  Age: 38 Year
  Sex: Female

DRUGS (3)
  1. CIPRO 500 MG [Suspect]
     Indication: PYELONEPHRITIS
     Dates: start: 20140310, end: 20140313
  2. LEXAPRO [Concomitant]
  3. LAMICTAL [Concomitant]

REACTIONS (2)
  - Pyelonephritis [None]
  - Contusion [None]
